FAERS Safety Report 8473794-6 (Version None)
Quarter: 2012Q2

REPORT INFORMATION
  Report Type: 
  Country: None (occurrence: None)
  Receive Date: 20120628
  Receipt Date: 20111115
  Transmission Date: 20120825
  Serious: No
  Sender: FDA-Public Use
  Company Number: US-MYLANLABS-2011S1023644

PATIENT
  Sex: Male

DRUGS (2)
  1. TILIA SPP. [Suspect]
     Dosage: TAKES ABOUT 1 HOUR BEFORE CLOZAPINE
     Route: 048
     Dates: start: 20111001
  2. CLOZAPINE [Suspect]
     Indication: SCHIZOAFFECTIVE DISORDER
     Route: 048

REACTIONS (3)
  - PSYCHOTIC DISORDER [None]
  - DRUG EFFECT DECREASED [None]
  - HERBAL INTERACTION [None]
